FAERS Safety Report 9536416 (Version 1)
Quarter: 2013Q2

REPORT INFORMATION
  Report Type: Spontaneous
  Country: US (occurrence: None)
  Receive Date: 20130507
  Receipt Date: 20130507
  Transmission Date: 20140414
  Serious: No
  Sender: FDA-Public Use
  Company Number: PHEH2013US000706

PATIENT
  Age: 59 Year
  Sex: Female

DRUGS (3)
  1. AFINITOR [Suspect]
     Indication: BREAST CANCER
     Route: 048
     Dates: start: 20121205
  2. ZOMETA (ZOLEDRONIC ACID) [Concomitant]
  3. LISINOPRIL (LISINOPRIL) [Concomitant]

REACTIONS (3)
  - Rash [None]
  - Stomatitis [None]
  - Diarrhoea [None]
